FAERS Safety Report 4993418-X (Version None)
Quarter: 2006Q2

REPORT INFORMATION
  Report Type: 
  Country: None (occurrence: None)
  Receive Date: 20060505
  Receipt Date: 20031103
  Transmission Date: 20061013
  Serious: Yes (Death, Life-Threatening, Hospitalization)
  Sender: FDA-Public Use
  Company Number: PHHO2003NL14006

PATIENT
  Age: 57 Year
  Sex: Female
  Weight: 57 kg

DRUGS (1)
  1. NEORAL [Suspect]
     Indication: LIVER TRANSPLANT
     Dosage: NOT REPORTED
     Route: 048
     Dates: start: 20030908

REACTIONS (17)
  - ABDOMINAL SEPSIS [None]
  - ACIDOSIS [None]
  - BRADYCARDIA [None]
  - CATHETER REMOVAL [None]
  - ENTEROCOCCAL INFECTION [None]
  - HAEMATOMA EVACUATION [None]
  - HYPOTENSION [None]
  - INTUBATION [None]
  - LAPAROTOMY [None]
  - LIFE SUPPORT [None]
  - OLIGURIA [None]
  - POST PROCEDURAL HAEMATOMA [None]
  - PSEUDOMONAS INFECTION [None]
  - RESPIRATORY FAILURE [None]
  - RESUSCITATION [None]
  - STAPHYLOCOCCAL INFECTION [None]
  - STRIDOR [None]
